FAERS Safety Report 4301211-6 (Version None)
Quarter: 2004Q1

REPORT INFORMATION
  Report Type: 
  Country: None (occurrence: None)
  Receive Date: 20040218
  Receipt Date: 20031120
  Transmission Date: 20041129
  Serious: No
  Sender: FDA-Public Use
  Company Number: 2003-11-1577

PATIENT
  Sex: Male

DRUGS (1)
  1. PEG-INTRON [Suspect]
     Dosage: 80 MCG
     Route: 058
     Dates: start: 20031119, end: 20031119

REACTIONS (2)
  - MEDICATION ERROR [None]
  - NONSPECIFIC REACTION [None]
